FAERS Safety Report 4341894-8 (Version None)
Quarter: 2004Q2

REPORT INFORMATION
  Report Type: 
  Country: None (occurrence: None)
  Receive Date: 20040415
  Receipt Date: 20040331
  Transmission Date: 20050107
  Serious: Yes (Hospitalization)
  Sender: FDA-Public Use
  Company Number: US_0404101944

PATIENT
  Age: 55 Year
  Sex: Male
  Weight: 91 kg

DRUGS (7)
  1. HUMATROPE [Suspect]
     Indication: GROWTH HORMONE DEFICIENCY
     Dosage: 0.3 MG DAY
     Dates: start: 20000918
  2. HYDROCORTISONE [Concomitant]
  3. SYNTHROID [Concomitant]
  4. VIAGRA [Concomitant]
  5. TYLENOL PM [Concomitant]
  6. EXCEDRIN (MIGRAINE) [Concomitant]
  7. PARLODEL [Concomitant]

REACTIONS (3)
  - FALL [None]
  - SPINAL FRACTURE [None]
  - WRIST FRACTURE [None]
